FAERS Safety Report 14307876 (Version 3)
Quarter: 2019Q1

REPORT INFORMATION
  Report Type: Report from Study
  Country: US (occurrence: US)
  Receive Date: 20171220
  Receipt Date: 20190211
  Transmission Date: 20190417
  Serious: No
  Sender: FDA-Public Use
  Company Number: US-ROCHE-2043151

PATIENT
  Age: 69 Year
  Sex: Male
  Weight: 134 kg

DRUGS (5)
  1. SOLU-MEDROL [Concomitant]
     Active Substance: METHYLPREDNISOLONE SODIUM SUCCINATE
     Indication: PREMEDICATION
  2. OCREVUS [Suspect]
     Active Substance: OCRELIZUMAB
     Indication: MULTIPLE SCLEROSIS
     Dosage: PATIENT WAS PRESCRIBED WITH OCRELIZUMAB INFUSION 300 MG ON DAY 1 AND DAY 15 FOLLOWED BY 600 MG EVERY
     Route: 042
     Dates: start: 20171017
  3. BENADRYL [Concomitant]
     Active Substance: DIPHENHYDRAMINE HYDROCHLORIDE
     Indication: PREMEDICATION
  4. PEPCID (UNITED STATES) [Concomitant]
     Indication: PREMEDICATION
  5. OCREVUS [Suspect]
     Active Substance: OCRELIZUMAB
     Route: 042
     Dates: start: 20171031

REACTIONS (6)
  - Rash [Recovered/Resolved]
  - Dry mouth [Unknown]
  - Gingival bleeding [Unknown]
  - Oral candidiasis [Not Recovered/Not Resolved]
  - Tongue coated [Unknown]
  - Oral pain [Unknown]

NARRATIVE: CASE EVENT DATE: 20171017
